FAERS Safety Report 18307186 (Version 1)
Quarter: 2020Q3

REPORT INFORMATION
  Report Type: Spontaneous
  Country: SE (occurrence: SE)
  Receive Date: 20200924
  Receipt Date: 20200924
  Transmission Date: 20201103
  Serious: Yes (Hospitalization, Other)
  Sender: FDA-Public Use
  Company Number: SE-TEVA-2020-SE-1829330

PATIENT
  Age: 29 Year
  Sex: Female

DRUGS (6)
  1. DESOGESTREL [Suspect]
     Active Substance: DESOGESTREL
     Dosage: UNK
     Dates: start: 20030728, end: 20030805
  2. FOLLISTREL [Suspect]
     Active Substance: LEVONORGESTREL
     Dosage: 1 DOSAGE FORMS DAILY;
     Dates: start: 2003, end: 200304
  3. TRIONETTA [Suspect]
     Active Substance: ETHINYL ESTRADIOL\LEVONORGESTREL
     Dosage: 1 TAB(S), UNK
     Route: 048
     Dates: start: 20030728, end: 20030805
  4. ETHINYLESTRADIOL + LEVONORGESTREL [Suspect]
     Active Substance: ETHINYL ESTRADIOL\LEVONORGESTREL
     Indication: ORAL CONTRACEPTION
     Dosage: 1 DOSAGE FORMS DAILY;
     Route: 048
     Dates: start: 200303, end: 200304
  5. DESOGESTREL [Suspect]
     Active Substance: DESOGESTREL
     Dosage: 1 DOSAGE FORMS DAILY;
     Route: 048
     Dates: start: 200304, end: 20030727
  6. TRIONETTA [Suspect]
     Active Substance: ETHINYL ESTRADIOL\LEVONORGESTREL
     Dosage: 1 DOSAGE FORMS DAILY;
     Route: 048
     Dates: start: 20030728, end: 20030805

REACTIONS (10)
  - Thrombotic thrombocytopenic purpura [Recovered/Resolved]
  - Blood creatinine increased [Recovered/Resolved]
  - Haemolysis [Recovered/Resolved]
  - Thrombocytopenia [Recovered/Resolved]
  - Nausea [Recovered/Resolved]
  - Anaphylactic reaction [Unknown]
  - Renal impairment [Not Recovered/Not Resolved]
  - Pyrexia [Recovered/Resolved]
  - Vomiting [Recovered/Resolved]
  - Thrombotic microangiopathy [Not Recovered/Not Resolved]

NARRATIVE: CASE EVENT DATE: 200308
